FAERS Safety Report 4405271-3 (Version None)
Quarter: 2004Q3

REPORT INFORMATION
  Report Type: 
  Country: None (occurrence: None)
  Receive Date: 20040715
  Receipt Date: 20040702
  Transmission Date: 20050211
  Serious: Yes (Hospitalization)
  Sender: FDA-Public Use
  Company Number: 049-0981-990201

PATIENT
  Age: 63 Year
  Sex: Male
  Weight: 93.2 kg

DRUGS (5)
  1. ATORVASTATIN CALCIUM [Suspect]
     Indication: CORONARY ARTERY DISEASE
     Dosage: 10 MG DAILY ORAL
     Route: 048
     Dates: start: 19981125, end: 19990117
  2. ASPIRIN [Concomitant]
  3. NITROGLYCERIN [Concomitant]
  4. DILTIAZEM [Concomitant]
  5. QUINAPRIL HCL [Concomitant]

REACTIONS (3)
  - ANAEMIA POSTOPERATIVE [None]
  - BILE DUCT STONE [None]
  - SYNCOPE [None]
